FAERS Safety Report 13678521 (Version 1)
Quarter: 2017Q2

REPORT INFORMATION
  Report Type: Spontaneous
  Country: GB (occurrence: GB)
  Receive Date: 20170622
  Receipt Date: 20170622
  Transmission Date: 20170830
  Serious: Yes (Disabling)
  Sender: FDA-Public Use
  Company Number: GB-PFIZER INC-2017264349

PATIENT
  Age: 69 Year
  Sex: Female
  Weight: 50.75 kg

DRUGS (5)
  1. OMEPRAZOLE. [Concomitant]
     Active Substance: OMEPRAZOLE
  2. SIMVASTATIN. [Concomitant]
     Active Substance: SIMVASTATIN
  3. DOCUSATE [Concomitant]
     Active Substance: DOCUSATE
  4. PARACETAMOL [Concomitant]
     Active Substance: ACETAMINOPHEN
  5. ZOLEDRONIC ACID [Suspect]
     Active Substance: ZOLEDRONIC ACID
     Indication: HYPERCALCAEMIA OF MALIGNANCY
     Dosage: 4 MG, UNK
     Route: 042
     Dates: start: 20170605, end: 20170605

REACTIONS (2)
  - Visual impairment [Recovering/Resolving]
  - Blindness [Recovered/Resolved with Sequelae]

NARRATIVE: CASE EVENT DATE: 20170605
